FAERS Safety Report 6541335-6 (Version None)
Quarter: 2010Q1

REPORT INFORMATION
  Report Type: 
  Country: None (occurrence: None)
  Receive Date: 20100118
  Receipt Date: 20100104
  Transmission Date: 20100710
  Serious: Yes (Death)
  Sender: FDA-Public Use
  Company Number: US-BAYER-201011268GPV

PATIENT
  Age: 41 Year
  Sex: Female

DRUGS (3)
  1. ACETAMINOPHEN/ DIPHENHYDRAMINE [Suspect]
     Indication: COMPLETED SUICIDE
  2. DIPHENHYDRAMINE [Suspect]
     Indication: COMPLETED SUICIDE
  3. BENZODIAZEPINE [Suspect]
     Indication: COMPLETED SUICIDE

REACTIONS (1)
  - DRUG TOXICITY [None]
